FAERS Safety Report 4976436-7 (Version None)
Quarter: 2006Q2

REPORT INFORMATION
  Report Type: 
  Country: None (occurrence: None)
  Receive Date: 20060419
  Receipt Date: 20060412
  Transmission Date: 20061013
  Serious: Yes (Hospitalization)
  Sender: FDA-Public Use
  Company Number: CA-ROCHE-444319

PATIENT
  Age: 73 Year
  Sex: Male

DRUGS (1)
  1. XENICAL [Suspect]
     Indication: WEIGHT CONTROL
     Route: 048
     Dates: start: 20020128

REACTIONS (1)
  - INTESTINAL OBSTRUCTION [None]
